FAERS Safety Report 15632313 (Version 1)
Quarter: 2018Q4

REPORT INFORMATION
  Report Type: Spontaneous
  Country: CA (occurrence: CA)
  Receive Date: 20181119
  Receipt Date: 20181119
  Transmission Date: 20190205
  Serious: Yes (Hospitalization, Other)
  Sender: FDA-Public Use
  Company Number: CA-PFIZER INC-2018349958

PATIENT
  Age: 57 Year
  Sex: Female

DRUGS (10)
  1. IBRANCE [Suspect]
     Active Substance: PALBOCICLIB
     Indication: BREAST CANCER METASTATIC
     Dosage: 125 MG, 1X/DAY (21 DAYS AND OFF FOR 7 DAYS)
     Route: 048
     Dates: start: 20180915
  2. LENOLTECH NO 3 [Concomitant]
     Dosage: 30 MG, UNK
  3. SENOKOT [Concomitant]
     Active Substance: SENNOSIDES
     Dosage: 8.6
  4. TYLENOL EXTRA STRENGTH [Concomitant]
     Active Substance: ACETAMINOPHEN
     Dosage: 500 MG, ALTERNATING EVERY 2 HOURS
  5. LACTULOSE. [Concomitant]
     Active Substance: LACTULOSE
     Dosage: 15 ML, UNK
  6. EXTRA STRENGTH IBUPROFEN [Concomitant]
     Dosage: 400 MG, UNK
  7. APO HYDROMORPHONE [Concomitant]
     Active Substance: HYDROMORPHONE HYDROCHLORIDE
     Dosage: 1 MG, UNK
  8. TAMOXIFEN [Concomitant]
     Active Substance: TAMOXIFEN
     Dosage: 20 MG, UNK
  9. ZOPICLONE [Concomitant]
     Active Substance: ZOPICLONE
     Dosage: 3.75 MG (0.5 DF), BEDTIME
  10. ELTROXIN [Concomitant]
     Active Substance: LEVOTHYROXINE
     Dosage: 0.1 MG, UNK

REACTIONS (2)
  - Haemoglobin decreased [Unknown]
  - Lung infection [Unknown]
